FAERS Safety Report 9101870 (Version 2)
Quarter: 2013Q1

REPORT INFORMATION
  Report Type: Spontaneous
  Country: US (occurrence: US)
  Receive Date: 20130218
  Receipt Date: 20130313
  Transmission Date: 20140127
  Serious: Yes (Hospitalization, Other)
  Sender: FDA-Public Use
  Company Number: US-ASTELLAS-2013US001615

PATIENT
  Age: 3 Year
  Sex: Female

DRUGS (4)
  1. PROGRAF [Suspect]
     Indication: LIVER TRANSPLANT
     Dosage: 1 MG EVERY MORNING AND 0.5 MG EVERY EVENING
     Route: 048
     Dates: start: 20120111
  2. BACTRIM [Concomitant]
     Indication: PRODUCT USED FOR UNKNOWN INDICATION
     Dosage: 70 MG, MWF
     Route: 048
  3. MULTIVITAMINS, PLAIN [Concomitant]
     Indication: PRODUCT USED FOR UNKNOWN INDICATION
     Dosage: UNK
     Route: 048
  4. VITAMIN E                          /00110501/ [Concomitant]
     Indication: PRODUCT USED FOR UNKNOWN INDICATION
     Dosage: UNK
     Route: 065

REACTIONS (9)
  - Abdominal hernia [Recovering/Resolving]
  - Liver injury [Unknown]
  - Enzyme abnormality [Unknown]
  - Fistula [Unknown]
  - Subcutaneous haematoma [Unknown]
  - Postoperative adhesion [Unknown]
  - Rhinorrhoea [Recovered/Resolved]
  - Ecchymosis [Unknown]
  - Oral herpes [Unknown]
